FAERS Safety Report 19089624 (Version 1)
Quarter: 2021Q2

REPORT INFORMATION
  Report Type: Spontaneous
  Country: US (occurrence: US)
  Receive Date: 20210403
  Receipt Date: 20210403
  Transmission Date: 20210717
  Serious: Yes (Hospitalization, Other)
  Sender: FDA-Public Use
  Company Number: US-CIPLA LTD.-2021US02562

PATIENT

DRUGS (39)
  1. CARBOPLATIN. [Suspect]
     Active Substance: CARBOPLATIN
     Indication: CONGENITAL RETINOBLASTOMA
     Dosage: 124 MG (CYCLE 1, DAY1)
     Route: 042
  2. CARBOPLATIN. [Suspect]
     Active Substance: CARBOPLATIN
     Dosage: 128.8 MG (CYCLE 5, DAY1)
     Route: 042
  3. CARBOPLATIN. [Suspect]
     Active Substance: CARBOPLATIN
     Dosage: 50 MG, CYCLE 1
     Route: 013
  4. CARBOPLATIN. [Suspect]
     Active Substance: CARBOPLATIN
     Dosage: 50 MG, CYCLE 2
     Route: 013
  5. ETOPOSIDE. [Suspect]
     Active Substance: ETOPOSIDE
     Indication: CONGENITAL RETINOBLASTOMA
     Dosage: 53.4 MG (CYCLE 1, DAY 1)
     Route: 042
  6. ETOPOSIDE. [Suspect]
     Active Substance: ETOPOSIDE
     Dosage: 54.6 MG (CYCLE 2, DAY 1)
     Route: 042
  7. ETOPOSIDE. [Suspect]
     Active Substance: ETOPOSIDE
     Dosage: 55.8 MG (CYCLE 6, DAY 1)
     Route: 042
  8. VINCRISTINE [Suspect]
     Active Substance: VINCRISTINE
     Dosage: 0.2 MG (DAY1, CYCLE 3)
     Route: 042
  9. VINCRISTINE [Suspect]
     Active Substance: VINCRISTINE
     Dosage: 0.5 MG (DAY1, CYCLE 6)
     Route: 042
  10. MELPHALAN. [Suspect]
     Active Substance: MELPHALAN
     Indication: CONGENITAL RETINOBLASTOMA
     Dosage: 4 MG (CYCLE 1)
     Route: 013
  11. CARBOPLATIN. [Suspect]
     Active Substance: CARBOPLATIN
     Dosage: 137.2 MG (CYCLE 4, DAY1)
     Route: 042
  12. CARBOPLATIN. [Suspect]
     Active Substance: CARBOPLATIN
     Dosage: 130.2 MG (CYCLE 6, DAY2)
     Route: 042
  13. TOPOTECAN [Suspect]
     Active Substance: TOPOTECAN HYDROCHLORIDE
     Dosage: 2 MG, CYCLE 2
     Route: 013
  14. ETOPOSIDE. [Suspect]
     Active Substance: ETOPOSIDE
     Dosage: 55.2 MG (CYCLE 3, DAY 2)
     Route: 042
  15. VINCRISTINE [Suspect]
     Active Substance: VINCRISTINE
     Dosage: 0.5 MG (DAY1, CYCLE 4)
     Route: 042
  16. CARBOPLATIN. [Suspect]
     Active Substance: CARBOPLATIN
     Dosage: 127 MG (CYCLE 2, DAY2)
     Route: 042
  17. CARBOPLATIN. [Suspect]
     Active Substance: CARBOPLATIN
     Dosage: 128.8 MG (CYCLE 3, DAY1)
     Route: 042
  18. ETOPOSIDE. [Suspect]
     Active Substance: ETOPOSIDE
     Dosage: 55.2 MG (CYCLE 3, DAY 1)
     Route: 042
  19. ETOPOSIDE. [Suspect]
     Active Substance: ETOPOSIDE
     Dosage: 55.2 MG (CYCLE 5, DAY 2)
     Route: 042
  20. ETOPOSIDE. [Suspect]
     Active Substance: ETOPOSIDE
     Dosage: 55.8 MG (CYCLE 6, DAY 2)
     Route: 042
  21. CARBOPLATIN. [Suspect]
     Active Substance: CARBOPLATIN
     Dosage: 130.2 MG (CYCLE 6, DAY1)
     Route: 042
  22. TOPOTECAN [Suspect]
     Active Substance: TOPOTECAN HYDROCHLORIDE
     Indication: CONGENITAL RETINOBLASTOMA
     Dosage: 2 MG, CYCLE 1
     Route: 013
  23. ETOPOSIDE. [Suspect]
     Active Substance: ETOPOSIDE
     Dosage: 53.4 MG (CYCLE 1, DAY 2)
     Route: 042
  24. ETOPOSIDE. [Suspect]
     Active Substance: ETOPOSIDE
     Dosage: 58.8 MG (CYCLE 4, DAY 1)
     Route: 042
  25. ETOPOSIDE. [Suspect]
     Active Substance: ETOPOSIDE
     Dosage: 58.8 MG (CYCLE 4, DAY 2)
     Route: 042
  26. VINCRISTINE [Suspect]
     Active Substance: VINCRISTINE
     Indication: CONGENITAL RETINOBLASTOMA
     Dosage: 0.2 MG (DAY1, CYCLE 1)
     Route: 042
  27. CARBOPLATIN. [Suspect]
     Active Substance: CARBOPLATIN
     Dosage: 128.8 MG (CYCLE 3, DAY2)
     Route: 042
  28. CARBOPLATIN. [Suspect]
     Active Substance: CARBOPLATIN
     Dosage: 128.8 MG (CYCLE 5, DAY2)
     Route: 042
  29. TOPOTECAN [Suspect]
     Active Substance: TOPOTECAN HYDROCHLORIDE
     Dosage: 2 MG, CYCLE 3
     Route: 013
  30. ETOPOSIDE. [Suspect]
     Active Substance: ETOPOSIDE
     Dosage: 55.2 MG (CYCLE 5, DAY 1)
     Route: 042
  31. VINCRISTINE [Suspect]
     Active Substance: VINCRISTINE
     Dosage: 0.5 MG (DAY1, CYCLE 5)
     Route: 042
  32. CARBOPLATIN. [Suspect]
     Active Substance: CARBOPLATIN
     Dosage: 137.2 MG (CYCLE 4, DAY2)
     Route: 042
  33. CARBOPLATIN. [Suspect]
     Active Substance: CARBOPLATIN
     Dosage: 50 MG, CYCLE 3
     Route: 013
  34. CARBOPLATIN. [Suspect]
     Active Substance: CARBOPLATIN
     Dosage: 50 MG, CYCLE 4
     Route: 013
  35. ETOPOSIDE. [Suspect]
     Active Substance: ETOPOSIDE
     Dosage: 54.6 MG (CYCLE 2, DAY 2)
     Route: 042
  36. CARBOPLATIN. [Suspect]
     Active Substance: CARBOPLATIN
     Dosage: 124 MG (CYCLE 1, DAY2)
     Route: 042
  37. CARBOPLATIN. [Suspect]
     Active Substance: CARBOPLATIN
     Dosage: 127 MG (CYCLE 2, DAY1)
     Route: 042
  38. TOPOTECAN [Suspect]
     Active Substance: TOPOTECAN HYDROCHLORIDE
     Dosage: 2 MG, CYCLE 4
     Route: 013
  39. VINCRISTINE [Suspect]
     Active Substance: VINCRISTINE
     Dosage: 0.2 MG (DAY1, CYCLE 2)
     Route: 042

REACTIONS (10)
  - Febrile neutropenia [Unknown]
  - Thrombocytopenia [Unknown]
  - Neutropenia [Unknown]
  - Dehydration [Unknown]
  - Toxicity to various agents [Unknown]
  - Cytopenia [Unknown]
  - Anaemia [Unknown]
  - Eyelid oedema [Unknown]
  - Bronchiolitis [Unknown]
  - Dyspnoea [Unknown]
